FAERS Safety Report 12560923 (Version 1)
Quarter: 2016Q3

REPORT INFORMATION
  Report Type: Spontaneous
  Country: US (occurrence: None)
  Receive Date: 20160714
  Receipt Date: 20160714
  Transmission Date: 20161109
  Serious: Yes (Other)
  Sender: FDA-Public Use
  Company Number: None

PATIENT
  Age: 68 Year
  Sex: Male

DRUGS (1)
  1. DOCUSATE, 100 MG /10 ML [Suspect]
     Active Substance: DOCUSATE
     Indication: CONSTIPATION
     Dates: start: 20160508, end: 20160525

REACTIONS (2)
  - Burkholderia test positive [None]
  - Sputum culture positive [None]

NARRATIVE: CASE EVENT DATE: 20160707
